FAERS Safety Report 10951337 (Version 13)
Quarter: 2015Q3

REPORT INFORMATION
  Report Type: Report from Study
  Country: CO (occurrence: CO)
  Receive Date: 20150324
  Receipt Date: 20150910
  Transmission Date: 20151125
  Serious: Yes (Hospitalization, Other)
  Sender: FDA-Public Use
  Company Number: PHHY2015CO031779

PATIENT
  Sex: Female
  Weight: 55 kg

DRUGS (6)
  1. ACETAMINOPHEN. [Concomitant]
     Active Substance: ACETAMINOPHEN
     Indication: PAIN
     Dosage: UNK UNK, TID
     Route: 065
  2. OMEPRAZOLE. [Concomitant]
     Active Substance: OMEPRAZOLE
     Indication: GASTRITIS
     Dosage: UNK UNK, QD
     Route: 065
  3. EXEMESTANE. [Concomitant]
     Active Substance: EXEMESTANE
     Indication: BREAST CANCER
     Dosage: 25 MG, QD
     Route: 065
  4. AFINITOR [Interacting]
     Active Substance: EVEROLIMUS
     Indication: LUNG NEOPLASM MALIGNANT
  5. AFINITOR [Interacting]
     Active Substance: EVEROLIMUS
     Indication: BREAST CANCER
     Dosage: 10 MG, QD
     Route: 065
     Dates: start: 20141216
  6. ENALAPRIL [Suspect]
     Active Substance: ENALAPRIL
     Indication: HYPERTENSION
     Dosage: 20 MG, UNK
     Route: 065

REACTIONS (24)
  - Headache [Unknown]
  - Choking [Unknown]
  - Gastroenteritis [Recovered/Resolved]
  - Weight decreased [Unknown]
  - Inflammation [Unknown]
  - Mouth ulceration [Recovering/Resolving]
  - Dehydration [Unknown]
  - Diarrhoea [Unknown]
  - Apathy [Unknown]
  - Anaemia [Unknown]
  - Drug interaction [Unknown]
  - Bone pain [Unknown]
  - Asthenia [Unknown]
  - Obstructive airways disorder [Recovering/Resolving]
  - Oral mucosal blistering [Unknown]
  - Immunosuppression [Unknown]
  - Swollen tongue [Unknown]
  - Kidney infection [Unknown]
  - Oral disorder [Unknown]
  - Decreased appetite [Unknown]
  - Peripheral swelling [Unknown]
  - Malaise [Unknown]
  - Depression [Unknown]
  - Cystitis [Unknown]
